FAERS Safety Report 24654584 (Version 1)
Quarter: 2024Q4

REPORT INFORMATION
  Report Type: Spontaneous
  Country: US (occurrence: US)
  Receive Date: 20241122
  Receipt Date: 20241122
  Transmission Date: 20250115
  Serious: No
  Sender: JOURNEY MEDICAL CORPORATION
  Company Number: US-JOURNEY MEDICAL CORPORATION-2024JNY00014

PATIENT
  Age: 15 Year
  Sex: Female

DRUGS (3)
  1. AMZEEQ [Suspect]
     Active Substance: MINOCYCLINE HYDROCHLORIDE
     Indication: Acne
     Dosage: UNK UNK, 1X/DAY, IN THE MORNING TO AFFECTED AREA(S)
     Route: 061
     Dates: start: 20240122
  2. TWYNEO [Concomitant]
     Active Substance: BENZOYL PEROXIDE\TRETINOIN
     Dosage: UNK, 1X/DAY, APPLY TO AFFECTED AREA IN THE EVENING
  3. DOXYCYCLINE [Concomitant]
     Active Substance: DOXYCYCLINE
     Dosage: 100 MG, 1X/DAY AT BEDTIME

REACTIONS (1)
  - Yellow skin [Not Recovered/Not Resolved]

NARRATIVE: CASE EVENT DATE: 20240122
